FAERS Safety Report 25329433 (Version 1)
Quarter: 2025Q2

REPORT INFORMATION
  Report Type: Spontaneous
  Country: KR (occurrence: KR)
  Receive Date: 20250519
  Receipt Date: 20250519
  Transmission Date: 20250717
  Serious: Yes (Death, Other)
  Sender: SANOFI AVENTIS
  Company Number: KR-DialogSolutions-SAAVPROD-PI769410-C1

PATIENT
  Age: 77 Year
  Sex: Male

DRUGS (3)
  1. OXALIPLATIN [Suspect]
     Active Substance: OXALIPLATIN
     Indication: Pancreatic carcinoma
  2. FLUOROURACIL SODIUM [Suspect]
     Active Substance: FLUOROURACIL SODIUM
     Indication: Pancreatic carcinoma
  3. IRINOTECAN [Suspect]
     Active Substance: IRINOTECAN
     Indication: Pancreatic carcinoma

REACTIONS (7)
  - Urinary tract infection [Fatal]
  - Liver abscess [Unknown]
  - Systemic candida [Recovered/Resolved]
  - Pneumonitis aspiration [Unknown]
  - Neutropenia [Unknown]
  - Pyrexia [Unknown]
  - Off label use [Unknown]
